FAERS Safety Report 20813256 (Version 1)
Quarter: 2022Q2

REPORT INFORMATION
  Report Type: Report from Study
  Country: US (occurrence: US)
  Receive Date: 20220511
  Receipt Date: 20220511
  Transmission Date: 20220721
  Serious: Yes (Hospitalization)
  Sender: FDA-Public Use
  Company Number: US-JNJFOC-20220511761

PATIENT
  Age: 25 Year
  Sex: Male
  Weight: 88.530 kg

DRUGS (1)
  1. INFLIXIMAB [Suspect]
     Active Substance: INFLIXIMAB
     Indication: Inflammatory bowel disease
     Route: 042
     Dates: start: 20140819

REACTIONS (1)
  - Intestinal obstruction [Recovered/Resolved]

NARRATIVE: CASE EVENT DATE: 20220101
